FAERS Safety Report 15066570 (Version 1)
Quarter: 2018Q2

REPORT INFORMATION
  Report Type: Spontaneous
  Country: US (occurrence: US)
  Receive Date: 20180606
  Receipt Date: 20180606
  Transmission Date: 20180711
  Serious: Yes (Disabling)
  Sender: FDA-Public Use
  Company Number: None

PATIENT
  Age: 52 Year
  Sex: Male
  Weight: 88.9 kg

DRUGS (6)
  1. OMEPRAZOLE. [Concomitant]
     Active Substance: OMEPRAZOLE
  2. AMLODIPINE BESYLATE. [Concomitant]
     Active Substance: AMLODIPINE BESYLATE
  3. MULTIVITAMIN [Concomitant]
     Active Substance: VITAMINS
  4. HYDROCHLOROTHIAZIDE. [Suspect]
     Active Substance: HYDROCHLOROTHIAZIDE
     Indication: HYPERTENSION
     Dosage: ?          QUANTITY:1 DF DOSAGE FORM;?
     Route: 048
     Dates: start: 201405, end: 201712
  5. RANITIDINE. [Concomitant]
     Active Substance: RANITIDINE
  6. XIIDRA [Concomitant]
     Active Substance: LIFITEGRAST

REACTIONS (19)
  - Seizure [None]
  - Visual acuity reduced [None]
  - Confusional state [None]
  - Muscle fatigue [None]
  - Lethargy [None]
  - Muscle spasms [None]
  - Nausea [None]
  - Gastrointestinal disorder [None]
  - Vision blurred [None]
  - Restlessness [None]
  - Sialoadenitis [None]
  - Asthenia [None]
  - Epigastric discomfort [None]
  - Thirst [None]
  - Somnolence [None]
  - Myalgia [None]
  - Diarrhoea [None]
  - Polyuria [None]
  - Dry mouth [None]

NARRATIVE: CASE EVENT DATE: 2015
